FAERS Safety Report 9848651 (Version 1)
Quarter: 2013Q4

REPORT INFORMATION
  Report Type: Spontaneous
  Country: US (occurrence: None)
  Receive Date: 20131226
  Receipt Date: 20131226
  Transmission Date: 20140711
  Serious: Yes (Other)
  Sender: FDA-Public Use
  Company Number: PHEH2013US016954

PATIENT
  Sex: Male

DRUGS (2)
  1. DICLOFENAC [Suspect]
  2. CELECOXIB (CELECOXIB) [Concomitant]

REACTIONS (1)
  - Renal failure [None]
